FAERS Safety Report 20449229 (Version 1)
Quarter: 2022Q1

REPORT INFORMATION
  Report Type: Spontaneous
  Country: US (occurrence: None)
  Receive Date: 20220208
  Receipt Date: 20220208
  Transmission Date: 20220423
  Serious: Yes (Death)
  Sender: FDA-Public Use
  Company Number: None

PATIENT
  Age: 46 Year
  Sex: Male
  Weight: 102 kg

DRUGS (1)
  1. MOLNUPIRAVIR [Suspect]
     Active Substance: MOLNUPIRAVIR
     Dates: start: 20220114, end: 20220119

REACTIONS (8)
  - Neutropenia [None]
  - Acute respiratory failure [None]
  - Septic shock [None]
  - COVID-19 pneumonia [None]
  - Pneumonia [None]
  - Pneumonia fungal [None]
  - Bone marrow failure [None]
  - Pancytopenia [None]

NARRATIVE: CASE EVENT DATE: 20220206
